FAERS Safety Report 4936262-1 (Version None)
Quarter: 2006Q1

REPORT INFORMATION
  Report Type: 
  Country: None (occurrence: None)
  Receive Date: 20060127
  Receipt Date: 20051207
  Transmission Date: 20060701
  Serious: Yes (Other)
  Sender: FDA-Public Use
  Company Number: 2005140347

PATIENT
  Sex: Male

DRUGS (7)
  1. LYRICA [Suspect]
     Indication: NEURALGIA
     Dosage: 150 MG (50 MG,3 IN 1 D), ORAL
     Route: 048
     Dates: start: 20050923
  2. MAXZIDE [Concomitant]
  3. ACIPHEX [Concomitant]
  4. REGLAN [Concomitant]
  5. CIPRO [Concomitant]
  6. OMEGA-3 (OMEGA-3 TRIGLYCERIDES) [Concomitant]
  7. MULTIPLE VITAMINS (ASCORBIC ACID, ERGOCALCIFEROL, FOLIC ACID, RETINOL, [Concomitant]

REACTIONS (4)
  - CONFUSIONAL STATE [None]
  - DISORIENTATION [None]
  - HALLUCINATION [None]
  - THINKING ABNORMAL [None]
